FAERS Safety Report 20220052 (Version 1)
Quarter: 2021Q4

REPORT INFORMATION
  Report Type: Report from Study
  Country: CA (occurrence: CA)
  Receive Date: 20211222
  Receipt Date: 20211222
  Transmission Date: 20220303
  Serious: Yes (Other)
  Sender: FDA-Public Use
  Company Number: CA-JNJFOC-20211236735

PATIENT
  Age: 41 Year
  Sex: Female

DRUGS (2)
  1. REMICADE [Suspect]
     Active Substance: INFLIXIMAB
     Indication: Colitis ulcerative
     Dosage: 10 MG/KG
     Route: 042
     Dates: start: 20121108
  2. COVID-19 VACCINE [Concomitant]
     Indication: COVID-19 prophylaxis
     Dosage: FIRST DOSE ON 18-MAR-2021 AND SECOND DOSE ON 19-JUN-2021
     Route: 065
     Dates: start: 20210318

REACTIONS (2)
  - Immunodeficiency [Unknown]
  - COVID-19 [Unknown]

NARRATIVE: CASE EVENT DATE: 20211206
